FAERS Safety Report 22107415 (Version 3)
Quarter: 2023Q2

REPORT INFORMATION
  Report Type: Spontaneous
  Country: US (occurrence: US)
  Receive Date: 20230317
  Receipt Date: 20230508
  Transmission Date: 20230722
  Serious: Yes (Other)
  Sender: FDA-Public Use
  Company Number: US-AUROBINDO-AUR-APL-2023-011750

PATIENT
  Age: 16 Year
  Sex: Male
  Weight: 88 kg

DRUGS (17)
  1. DEXMEDETOMIDINE [Suspect]
     Active Substance: DEXMEDETOMIDINE
     Indication: Induction of anaesthesia
     Dosage: 0.2 MICROGRAM/KILOGRAM, EVERY HOUR
     Route: 040
  2. DEXMEDETOMIDINE [Suspect]
     Active Substance: DEXMEDETOMIDINE
     Dosage: 0.3 MICROGRAM/KILOGRAM, EVERY HOUR
     Route: 040
  3. SEVOFLURANE [Concomitant]
     Active Substance: SEVOFLURANE
     Indication: Induction of anaesthesia
     Dosage: 0.2? 0.6 (MINIMUM ALVEOLAR CONCENTARION)
     Route: 065
  4. SEVOFLURANE [Concomitant]
     Active Substance: SEVOFLURANE
     Dosage: 0.4-0.5 (MINIMUM ALVEOLAR CONCENTARION)
     Route: 065
  5. SEVOFLURANE [Concomitant]
     Active Substance: SEVOFLURANE
     Dosage: 0.2-0.3 (MINIMUM ALVEOLAR CONCENTARION)
     Route: 065
  6. SEVOFLURANE [Concomitant]
     Active Substance: SEVOFLURANE
     Dosage: 0.1 (MINIMUM ALVEOLAR CONCENTARION)
     Route: 065
  7. SEVOFLURANE [Concomitant]
     Active Substance: SEVOFLURANE
     Dosage: 0.3-0.5 (MINIMUM ALVEOLAR CONCENTARION)
     Route: 065
  8. SEVOFLURANE [Concomitant]
     Active Substance: SEVOFLURANE
     Dosage: 0.5-0.6 (MINIMUM ALVEOLAR CONCENTARION)
     Route: 065
  9. SEVOFLURANE [Concomitant]
     Active Substance: SEVOFLURANE
     Dosage: 0.6-0.8 (MINIMUM ALVEOLAR CONCENTARION)
     Route: 065
  10. SEVOFLURANE [Concomitant]
     Active Substance: SEVOFLURANE
     Dosage: 0.2-0.7 (MINIMUM ALVEOLAR CONCENTARION)
     Route: 065
  11. PROPOFOL [Concomitant]
     Active Substance: PROPOFOL
     Indication: Induction of anaesthesia
     Dosage: 150-175 MICROGRAM/KILOGRAM/MINIUTE
     Route: 065
  12. PROPOFOL [Concomitant]
     Active Substance: PROPOFOL
     Dosage: 150 MICROGRAM/KILOGRAM/MINIUTE
     Route: 065
  13. PROPOFOL [Concomitant]
     Active Substance: PROPOFOL
     Dosage: 80-150 MICROGRAM/KILOGRAM/MINIUTE
     Route: 065
  14. PROPOFOL [Concomitant]
     Active Substance: PROPOFOL
     Dosage: 80 MICROGRAM/KILOGRAM/MINIUTE
     Route: 065
  15. REMIFENTANIL [Concomitant]
     Active Substance: REMIFENTANIL
     Indication: Induction of anaesthesia
     Dosage: 0.2 MILLIGRAM/KILOGRAM, EVERY HOUR
     Route: 065
  16. REMIFENTANIL [Concomitant]
     Active Substance: REMIFENTANIL
     Dosage: 0.25-0.3 MILLIGRAM/KILOGRAM, EVERY HOUR
     Route: 065
  17. REMIFENTANIL [Concomitant]
     Active Substance: REMIFENTANIL
     Dosage: 0.3 MILLIGRAM/KILOGRAM, EVERY HOUR
     Route: 065

REACTIONS (1)
  - Diabetes insipidus [Recovered/Resolved]
